FAERS Safety Report 24709410 (Version 1)
Quarter: 2024Q4

REPORT INFORMATION
  Report Type: Spontaneous
  Country: IT (occurrence: IT)
  Receive Date: 20241209
  Receipt Date: 20241209
  Transmission Date: 20250115
  Serious: Yes (Hospitalization)
  Sender: STRIDES
  Company Number: IT-STRIDES ARCOLAB LIMITED-2024SP016245

PATIENT
  Age: 45 Year
  Sex: Female

DRUGS (7)
  1. ZOLPIDEM [Suspect]
     Active Substance: ZOLPIDEM TARTRATE
     Indication: Huntington^s disease
     Dosage: 10 MILLIGRAM, QD
     Route: 065
     Dates: start: 2022, end: 2023
  2. OLANZAPINE [Suspect]
     Active Substance: OLANZAPINE
     Indication: Huntington^s disease
     Dosage: 5 MILLIGRAM, BID
     Route: 065
     Dates: start: 2022, end: 2023
  3. QUETIAPINE [Suspect]
     Active Substance: QUETIAPINE
     Indication: Huntington^s disease
     Dosage: 25 MILLIGRAM, QD
     Route: 065
  4. QUETIAPINE [Suspect]
     Active Substance: QUETIAPINE
     Dosage: 50 MILLIGRAM, QD
     Route: 065
     Dates: start: 2022, end: 2023
  5. QUETIAPINE [Suspect]
     Active Substance: QUETIAPINE
     Dosage: UNK
     Route: 065
  6. HALOPERIDOL [Suspect]
     Active Substance: HALOPERIDOL
     Indication: Huntington^s disease
     Dosage: UNK (2MG.ML FIVE DROPS)
     Route: 065
     Dates: start: 2023, end: 2023
  7. VALPROIC ACID [Suspect]
     Active Substance: VALPROIC ACID
     Indication: Huntington^s disease
     Dosage: 200 MILLIGRAM, BID
     Route: 065
     Dates: start: 2022, end: 2023

REACTIONS (4)
  - Neuroleptic malignant syndrome [Recovered/Resolved]
  - Influenza like illness [Unknown]
  - Diarrhoea [Unknown]
  - Off label use [Unknown]

NARRATIVE: CASE EVENT DATE: 20230101
